FAERS Safety Report 26156623 (Version 1)
Quarter: 2025Q4

REPORT INFORMATION
  Report Type: Spontaneous
  Country: CA (occurrence: CA)
  Receive Date: 20251215
  Receipt Date: 20251215
  Transmission Date: 20260118
  Serious: Yes (Life-Threatening, Hospitalization, Other)
  Sender: TEVA
  Company Number: CA-TEVA-VS-3402200

PATIENT
  Age: 14 Year
  Sex: Female
  Weight: 43 kg

DRUGS (5)
  1. VINCRISTINE [Suspect]
     Active Substance: VINCRISTINE
     Indication: Chemotherapy
     Dosage: VINCRISTINE SULFATE , DOSE FORM : NOT SPECIFIED
     Route: 065
  2. ONCASPAR [Suspect]
     Active Substance: PEGASPARGASE
     Indication: Chemotherapy
     Dosage: DOSE FORM: NOT SPECIFIED
     Route: 042
  3. METHOTREXATE SODIUM [Suspect]
     Active Substance: METHOTREXATE SODIUM
     Indication: Chemotherapy
     Route: 065
  4. THIOGUANINE [Suspect]
     Active Substance: THIOGUANINE
     Indication: Chemotherapy
     Dosage: DOSE FORM : NOT SPECIFIED
     Route: 065
  5. CYTARABINE [Suspect]
     Active Substance: CYTARABINE
     Indication: Chemotherapy
     Dosage: DOSE FORM : POWDER FOR SOLUTION INTRATHECAL
     Route: 065

REACTIONS (1)
  - Febrile neutropenia [Recovered/Resolved]
